FAERS Safety Report 5719888-7 (Version None)
Quarter: 2008Q2

REPORT INFORMATION
  Report Type: 
  Country: None (occurrence: None)
  Receive Date: 20080428
  Receipt Date: 20070712
  Transmission Date: 20081010
  Serious: No
  Sender: FDA-Public Use
  Company Number: A0663370A

PATIENT
  Age: 43 Year
  Sex: Female

DRUGS (2)
  1. ONDANSETRON [Suspect]
     Indication: TREMOR
     Dosage: 8MG TWICE PER DAY
     Route: 048
     Dates: start: 20070601
  2. ZOFRAN [Suspect]
     Indication: TREMOR
     Route: 048
     Dates: end: 20070601

REACTIONS (5)
  - DRUG INEFFECTIVE [None]
  - FEELING OF RELAXATION [None]
  - OFF LABEL USE [None]
  - STOMACH DISCOMFORT [None]
  - THERAPEUTIC RESPONSE UNEXPECTED [None]
